FAERS Safety Report 9293433 (Version 2)
Quarter: 2013Q4

REPORT INFORMATION
  Report Type: Spontaneous
  Country: US (occurrence: US)
  Receive Date: 20130517
  Receipt Date: 20131025
  Transmission Date: 20140711
  Serious: Yes (Hospitalization, Disabling, Other)
  Sender: FDA-Public Use
  Company Number: US-009507513-1305USA005529

PATIENT
  Sex: Female

DRUGS (4)
  1. FOSAMAX [Suspect]
     Indication: OSTEOPENIA
     Dosage: 10 MG, UNK
     Route: 048
     Dates: start: 1997, end: 20001020
  2. FOSAMAX [Suspect]
     Dosage: 70 MG, UNK
     Route: 048
     Dates: start: 20001020, end: 20060430
  3. BONIVA [Suspect]
     Indication: OSTEOPENIA
     Dosage: 150 MG, UNK
     Route: 048
     Dates: start: 20060430, end: 20110531
  4. CALCIUM (UNSPECIFIED) [Concomitant]
     Dosage: 1200 MG, BID
     Dates: start: 1999

REACTIONS (20)
  - Femur fracture [Not Recovered/Not Resolved]
  - Intramedullary rod insertion [Unknown]
  - Low turnover osteopathy [Not Recovered/Not Resolved]
  - Humerus fracture [Unknown]
  - Cerebrovascular accident [Unknown]
  - Depression [Unknown]
  - Anxiety [Unknown]
  - Upper limb fracture [Unknown]
  - Depression [Unknown]
  - Hypertension [Unknown]
  - Hypercholesterolaemia [Unknown]
  - Osteoma [Unknown]
  - Progressive cerebellar degeneration [Unknown]
  - Micturition urgency [Unknown]
  - Fibrocystic breast disease [Unknown]
  - Polyarthritis [Unknown]
  - Intervertebral disc degeneration [Unknown]
  - Arteriosclerosis [Unknown]
  - Anaemia [Unknown]
  - Drug ineffective [Unknown]
